FAERS Safety Report 23047364 (Version 1)
Quarter: 2023Q4

REPORT INFORMATION
  Report Type: Spontaneous
  Country: US (occurrence: US)
  Receive Date: 20231010
  Receipt Date: 20231010
  Transmission Date: 20240109
  Serious: Yes (Other)
  Sender: FDA-Public Use
  Company Number: US-AMGEN-USASP2023177486

PATIENT

DRUGS (1)
  1. REPATHA [Suspect]
     Active Substance: EVOLOCUMAB
     Indication: Blood cholesterol increased
     Dosage: UNK
     Route: 065

REACTIONS (7)
  - Kidney transplant rejection [Unknown]
  - Ear disorder [Unknown]
  - Vision blurred [Unknown]
  - Weight decreased [Unknown]
  - Laboratory test abnormal [Unknown]
  - Diarrhoea [Unknown]
  - Nausea [Unknown]
